FAERS Safety Report 9639193 (Version 2)
Quarter: 2013Q4

REPORT INFORMATION
  Report Type: Report from Study
  Country: CL (occurrence: CL)
  Receive Date: 20131022
  Receipt Date: 20131125
  Transmission Date: 20140711
  Serious: Yes (Hospitalization, Other)
  Sender: FDA-Public Use
  Company Number: CL-ROCHE-1291518

PATIENT
  Age: 31 Year
  Sex: Female
  Weight: 65 kg

DRUGS (3)
  1. ACTEMRA [Suspect]
     Indication: RHEUMATOID ARTHRITIS
     Route: 042
     Dates: start: 20130713, end: 20130823
  2. METHOTREXATE [Suspect]
     Indication: RHEUMATOID ARTHRITIS
     Route: 048
     Dates: start: 2000
  3. VENOFER [Concomitant]
     Indication: ANAEMIA
     Route: 042
     Dates: start: 2010

REACTIONS (4)
  - Foot deformity [Not Recovered/Not Resolved]
  - Ligament rupture [Recovered/Resolved]
  - Foot deformity [Recovered/Resolved]
  - Ligament rupture [Recovered/Resolved]
